FAERS Safety Report 5969322-7 (Version None)
Quarter: 2008Q4

REPORT INFORMATION
  Report Type: 
  Country: None (occurrence: None)
  Receive Date: 20081126
  Receipt Date: 20081117
  Transmission Date: 20090506
  Serious: Yes (Other)
  Sender: FDA-Public Use
  Company Number: US-GENENTECH-271874

PATIENT
  Sex: Male

DRUGS (16)
  1. RANIBIZUMAB [Suspect]
     Indication: MACULAR DEGENERATION
     Dosage: UNK
     Route: 031
     Dates: start: 20080915
  2. VISUDYNE [Suspect]
     Indication: MACULAR DEGENERATION
     Dosage: UNK
     Route: 042
     Dates: start: 20080915
  3. LEVOTHYROXINE SODIUM [Concomitant]
     Indication: DRUG USE FOR UNKNOWN INDICATION
  4. ATENOLOL [Concomitant]
     Indication: DRUG USE FOR UNKNOWN INDICATION
  5. HYDROCHLOROTHIAZIDE [Concomitant]
     Indication: DRUG USE FOR UNKNOWN INDICATION
  6. DOXAZOSIN MESYLATE [Concomitant]
     Indication: DRUG USE FOR UNKNOWN INDICATION
  7. ASCORBIC ACID [Concomitant]
     Indication: DRUG USE FOR UNKNOWN INDICATION
  8. VITAMIN E [Concomitant]
  9. COPPER [Concomitant]
     Indication: DRUG USE FOR UNKNOWN INDICATION
  10. ZINC [Concomitant]
     Indication: DRUG USE FOR UNKNOWN INDICATION
  11. LUTEIN [Concomitant]
     Indication: DRUG USE FOR UNKNOWN INDICATION
  12. FINASTERIDE [Concomitant]
     Indication: DRUG USE FOR UNKNOWN INDICATION
  13. GEMFIBROZIL [Concomitant]
  14. RANITIDINE [Concomitant]
     Indication: DRUG USE FOR UNKNOWN INDICATION
  15. TRAVOPROST [Concomitant]
     Indication: DRUG USE FOR UNKNOWN INDICATION
  16. CLOTRIMAZOLE [Concomitant]
     Indication: DRUG USE FOR UNKNOWN INDICATION

REACTIONS (1)
  - VISUAL ACUITY REDUCED [None]
